FAERS Safety Report 4643461-5 (Version None)
Quarter: 2005Q2

REPORT INFORMATION
  Report Type: 
  Country: None (occurrence: None)
  Receive Date: 20050323
  Receipt Date: 20040503
  Transmission Date: 20051028
  Serious: Yes (Other)
  Sender: FDA-Public Use
  Company Number: K200400688

PATIENT

DRUGS (1)
  1. ALTACE [Suspect]
     Indication: PROPHYLAXIS
     Dosage: 10 MG, QD, ORAL
     Route: 048

REACTIONS (1)
  - ANGIONEUROTIC OEDEMA [None]
